FAERS Safety Report 9899321 (Version 1)
Quarter: 2014Q1

REPORT INFORMATION
  Report Type: Spontaneous
  Country: FR (occurrence: FR)
  Receive Date: 20140214
  Receipt Date: 20140214
  Transmission Date: 20141002
  Serious: Yes (Hospitalization, Other)
  Sender: FDA-Public Use
  Company Number: FR-PFIZER INC-2014041878

PATIENT
  Age: 58 Year
  Sex: Male

DRUGS (5)
  1. TRIATEC [Suspect]
     Dosage: 5 MG, 1X/DAY
     Route: 048
  2. BISOPROLOL FUMARATE [Suspect]
     Dosage: 2.5 MG, 1X/DAY
     Route: 048
     Dates: start: 201301
  3. LASILIX [Suspect]
     Dosage: 40 MG, 2X/DAY
     Route: 048
  4. SOMATULINE LP [Suspect]
     Dosage: 120 MG, MONTHLY
     Route: 058
     Dates: start: 2010
  5. DIFFU K [Concomitant]
     Dosage: UNK

REACTIONS (3)
  - Hypoglycaemia [Recovered/Resolved]
  - Hypoglycaemic coma [Recovered/Resolved]
  - Blood glucose increased [Unknown]
